FAERS Safety Report 8219579-7 (Version None)
Quarter: 2012Q1

REPORT INFORMATION
  Report Type: 
  Country: None (occurrence: None)
  Receive Date: 20120319
  Receipt Date: 20120308
  Transmission Date: 20120608
  Serious: Yes (Hospitalization, Other)
  Sender: FDA-Public Use
  Company Number: JP-ASTRAZENECA-2012SE03380

PATIENT
  Age: 27 Year
  Sex: Female
  Weight: 53.3 kg

DRUGS (8)
  1. SEROQUEL [Suspect]
     Indication: AUTONOMIC NERVOUS SYSTEM IMBALANCE
     Route: 048
     Dates: start: 20110101, end: 20111217
  2. LORAZEPAM [Concomitant]
     Dates: start: 20100101
  3. BLONANSERIN [Concomitant]
     Dates: start: 20100101
  4. SEROQUEL [Suspect]
     Indication: SCHIZOPHRENIA
     Route: 048
     Dates: start: 20110101, end: 20111217
  5. ZOLPIDEM [Suspect]
     Indication: AUTONOMIC NERVOUS SYSTEM IMBALANCE
     Route: 048
     Dates: start: 20080101, end: 20111217
  6. ROHYPNOL [Concomitant]
     Dates: start: 20100101
  7. DEPAS [Concomitant]
     Dates: start: 20100101
  8. KAMIKIHITOU [Concomitant]
     Dates: start: 20100101

REACTIONS (3)
  - THREATENED LABOUR [None]
  - VOMITING [None]
  - MATERNAL EXPOSURE DURING PREGNANCY [None]
